FAERS Safety Report 10394053 (Version 1)
Quarter: 2014Q3

REPORT INFORMATION
  Report Type: Spontaneous
  Country: US (occurrence: None)
  Receive Date: 20140818
  Receipt Date: 20140818
  Transmission Date: 20150326
  Serious: Yes (Other)
  Sender: FDA-Public Use
  Company Number: 2014ECL00009

PATIENT

DRUGS (1)
  1. NEOSTIGMINE [Suspect]
     Active Substance: NEOSTIGMINE

REACTIONS (1)
  - Drug effect incomplete [None]
